FAERS Safety Report 20338258 (Version 1)
Quarter: 2022Q1

REPORT INFORMATION
  Report Type: Spontaneous
  Country: TR (occurrence: TR)
  Receive Date: 20220115
  Receipt Date: 20220115
  Transmission Date: 20220424
  Serious: Yes (Hospitalization, Other)
  Sender: FDA-Public Use
  Company Number: TR-AMGEN-TURSP2022002787

PATIENT

DRUGS (3)
  1. ADALIMUMAB [Suspect]
     Active Substance: ADALIMUMAB
     Indication: Uveitis
     Dosage: 24 MG/M2, MAXIMUM 40 MG/DOSE, Q2WK
     Route: 058
  2. ADALIMUMAB [Suspect]
     Active Substance: ADALIMUMAB
     Dosage: 24 MG/M2, MAXIMUM 40 MG/DOSE, QW
     Route: 058
  3. ADALIMUMAB [Suspect]
     Active Substance: ADALIMUMAB
     Dosage: UNK UNK, Q2WK
     Route: 058

REACTIONS (8)
  - Macular oedema [Unknown]
  - Glaucoma [Unknown]
  - Iris adhesions [Unknown]
  - Retinal detachment [Unknown]
  - Cataract [Unknown]
  - Therapy non-responder [Unknown]
  - Keratopathy [Unknown]
  - Visual acuity reduced [Unknown]
